FAERS Safety Report 7399777-5 (Version None)
Quarter: 2011Q2

REPORT INFORMATION
  Report Type: 
  Country: None (occurrence: None)
  Receive Date: 20110407
  Receipt Date: 20110323
  Transmission Date: 20111010
  Serious: Yes (Other)
  Sender: FDA-Public Use
  Company Number: HU-JNJFOC-20110310835

PATIENT

DRUGS (2)
  1. INFLIXIMAB, RECOMBINANT [Suspect]
     Indication: RHEUMATOID ARTHRITIS
     Dosage: WEEK 22
     Route: 042
  2. INFLIXIMAB, RECOMBINANT [Suspect]
     Dosage: WEEK 0, 2, 4, AND THEN EVERY 8 WEEKS
     Route: 042

REACTIONS (1)
  - LICHENOID KERATOSIS [None]
